FAERS Safety Report 6459929-5 (Version None)
Quarter: 2009Q4

REPORT INFORMATION
  Report Type: 
  Country: None (occurrence: None)
  Receive Date: 20091129
  Receipt Date: 20091116
  Transmission Date: 20100525
  Serious: Yes (Hospitalization)
  Sender: FDA-Public Use
  Company Number: PHHY2009CA50336

PATIENT
  Sex: Female

DRUGS (2)
  1. SANDOSTATIN LAR [Suspect]
     Indication: NEUROENDOCRINE TUMOUR
     Dosage: 30 MG EVERY 4 WEEKS
     Route: 030
     Dates: start: 20091001
  2. SANDOSTATIN [Suspect]
     Indication: SURGERY
     Dosage: UNK
     Route: 058
     Dates: start: 20091029, end: 20091115

REACTIONS (1)
  - INTESTINAL RESECTION [None]
